FAERS Safety Report 17830306 (Version 4)
Quarter: 2020Q3

REPORT INFORMATION
  Report Type: Report from Study
  Country: CA (occurrence: CA)
  Receive Date: 20200527
  Receipt Date: 20200904
  Transmission Date: 20201102
  Serious: Yes (Other)
  Sender: FDA-Public Use
  Company Number: CA-TAKEDA-2019TUS049092

PATIENT
  Age: 75 Year
  Sex: Male
  Weight: 62.4 kg

DRUGS (28)
  1. IXAZOMIB [Suspect]
     Active Substance: IXAZOMIB
     Indication: PLASMA CELL MYELOMA
     Dosage: 2.3 MILLIGRAM
     Route: 048
     Dates: start: 20180425
  2. POMALYST [Suspect]
     Active Substance: POMALIDOMIDE
     Indication: PLASMA CELL MYELOMA
     Dosage: 2 MILLIGRAM, QD
     Route: 065
     Dates: start: 20150721
  3. POMALYST [Suspect]
     Active Substance: POMALIDOMIDE
     Dosage: 3 MILLIGRAM, QD
     Route: 065
     Dates: start: 20151110
  4. CYCLOPHOSPHAMIDE. [Suspect]
     Active Substance: CYCLOPHOSPHAMIDE
     Indication: PLASMA CELL MYELOMA
     Dosage: 50 MILLIGRAM
     Route: 048
     Dates: start: 20190827, end: 20200424
  5. NEUPOGEN [Concomitant]
     Active Substance: FILGRASTIM
     Dosage: 300 MICROGRAM
     Route: 065
     Dates: start: 20190827
  6. ONDANSETRON [Concomitant]
     Active Substance: ONDANSETRON
     Dosage: 16 MILLIGRAM
     Route: 065
     Dates: start: 20181010
  7. ASPIRIN                            /00002701/ [Concomitant]
     Active Substance: ASPIRIN
     Dosage: 81 MILLIGRAM, QD
     Route: 065
     Dates: start: 20191015
  8. ASPIRIN                            /00002701/ [Concomitant]
     Active Substance: ASPIRIN
     Dosage: 81 MILLIGRAM, QD
     Route: 065
     Dates: start: 20200527
  9. PROCYTOX [Concomitant]
     Active Substance: CYCLOPHOSPHAMIDE
     Dosage: 50 MILLIGRAM
     Route: 048
     Dates: start: 20190827, end: 20200424
  10. DOCUSATE [Concomitant]
     Active Substance: DOCUSATE
     Dosage: UNK, QD
     Route: 065
     Dates: start: 20190528
  11. POMALYST [Suspect]
     Active Substance: POMALIDOMIDE
     Dosage: 4 MILLIGRAM
     Route: 065
     Dates: start: 20171108, end: 20190723
  12. ASPIRIN                            /00002701/ [Concomitant]
     Active Substance: ASPIRIN
     Dosage: 81 MILLIGRAM, QD
     Route: 065
     Dates: start: 20200424
  13. IXAZOMIB [Suspect]
     Active Substance: IXAZOMIB
     Dosage: 3 MILLIGRAM
     Route: 065
     Dates: start: 20180523
  14. ACYCLOVIR                          /00587301/ [Concomitant]
     Active Substance: ACYCLOVIR
     Dosage: 400 MILLIGRAM, BID
     Route: 065
     Dates: start: 20190110
  15. NEUPOGEN [Concomitant]
     Active Substance: FILGRASTIM
     Dosage: 300 MICROGRAM
     Route: 065
  16. POMALYST [Suspect]
     Active Substance: POMALIDOMIDE
     Dosage: 1 MILLIGRAM
     Route: 065
     Dates: start: 20200514
  17. ZOMETA [Concomitant]
     Active Substance: ZOLEDRONIC ACID
     Dosage: UNK UNK, Q3MONTHS
     Route: 065
     Dates: start: 20160524, end: 20160524
  18. ZOMETA [Concomitant]
     Active Substance: ZOLEDRONIC ACID
     Dosage: UNK, Q3MONTHS
     Route: 065
     Dates: start: 20181009
  19. ONDANSETRON [Concomitant]
     Active Substance: ONDANSETRON
     Dosage: 8 MILLIGRAM
     Route: 065
     Dates: start: 20190108, end: 20200130
  20. LODALIS [Concomitant]
     Active Substance: COLESEVELAM HYDROCHLORIDE
     Indication: DIARRHOEA
     Dosage: 625 MILLIGRAM, QD
     Route: 065
     Dates: start: 20190110, end: 20190528
  21. IXAZOMIB [Suspect]
     Active Substance: IXAZOMIB
     Dosage: 4 MILLIGRAM
     Route: 065
     Dates: start: 20190205
  22. POMALYST [Suspect]
     Active Substance: POMALIDOMIDE
     Dosage: 2 MILLIGRAM
     Route: 065
     Dates: start: 20200424
  23. ASPIRIN                            /00002701/ [Concomitant]
     Active Substance: ASPIRIN
     Dosage: 81 MILLIGRAM, QD
     Route: 065
     Dates: end: 20190820
  24. SENOKOT [Concomitant]
     Active Substance: SENNOSIDES
     Dosage: UNK, QD
     Route: 065
     Dates: start: 20190528
  25. DEXAMETHASONE. [Suspect]
     Active Substance: DEXAMETHASONE
     Indication: PRODUCT USED FOR UNKNOWN INDICATION
     Dosage: 20 MILLIGRAM, 1/WEEK
     Route: 065
     Dates: start: 20180620
  26. ONDANSETRON [Concomitant]
     Active Substance: ONDANSETRON
     Indication: DIARRHOEA
     Dosage: UNK
     Route: 065
     Dates: start: 20180620
  27. IXAZOMIB [Suspect]
     Active Substance: IXAZOMIB
     Dosage: 4 MILLIGRAM
     Route: 048
     Dates: start: 20180815, end: 20190130
  28. NEUPOGEN [Concomitant]
     Active Substance: FILGRASTIM
     Dosage: 300 MICROGRAM, 2/WEEK
     Route: 065
     Dates: start: 20181106

REACTIONS (7)
  - Nausea [Unknown]
  - Neutropenia [Unknown]
  - Liver function test increased [Unknown]
  - Squamous cell carcinoma [Unknown]
  - Prostatic specific antigen increased [Unknown]
  - Basal cell carcinoma [Unknown]
  - Prostate cancer [Unknown]

NARRATIVE: CASE EVENT DATE: 20200519
